FAERS Safety Report 9409771 (Version 1)
Quarter: 2013Q2

REPORT INFORMATION
  Report Type: Spontaneous
  Country: KR (occurrence: None)
  Receive Date: 20130507
  Receipt Date: 20130507
  Transmission Date: 20140414
  Serious: Yes (Hospitalization)
  Sender: FDA-Public Use
  Company Number: KR-JNJFOC-20110308526

PATIENT
  Age: 66 Year
  Sex: Female
  Weight: 67 kg

DRUGS (14)
  1. DACOGEN (DECITABINE) LYOPHILIZED POWDER [Suspect]
     Indication: MYELODYSPLASTIC SYNDROME
     Route: 042
     Dates: start: 20110204, end: 20110208
  2. UNSPECIFIED CONSTIPATION MEDICATIONS (LAXATIVES) [Concomitant]
  3. CITOPCIN (CIPROFLOXACIN HYDROCHLORIDE) [Concomitant]
  4. FLUNAZOLE (FLUCONAZOLE) [Concomitant]
  5. SOLONDO (PREDNISOLONE) [Concomitant]
  6. POLYCARBOPHIL (POLYCARBOPHIL) [Concomitant]
  7. COFREL (BENPROPERINE) [Concomitant]
  8. COUGH SYRUP (COUGH SYRUP) [Concomitant]
  9. DENOGAN (PROPACETAMOL HYDROCHLORIDE) [Concomitant]
  10. FURTMAN (MINERAL SUPPLEMENTS) [Concomitant]
  11. MEGACE (MEGESTROL ACETATE) SUSPENSION [Concomitant]
  12. VITAMINS [Concomitant]
  13. PROTAMINE (PROTAMINE) [Concomitant]
  14. TRIDOL (TRAMADOL HYDROCHLORIDE) INJECTION [Concomitant]

REACTIONS (6)
  - Adrenal insufficiency [None]
  - Decreased appetite [None]
  - Urinary tract infection [None]
  - Weight decreased [None]
  - Hypophagia [None]
  - Asthenia [None]
